FAERS Safety Report 7261072-2 (Version None)
Quarter: 2011Q1

REPORT INFORMATION
  Report Type: 
  Country: None (occurrence: None)
  Receive Date: 20110130
  Receipt Date: 20101222
  Transmission Date: 20110831
  Serious: No
  Sender: FDA-Public Use
  Company Number: US-ABBOTT-10P-163-0694062-00

PATIENT
  Sex: Male
  Weight: 83.99 kg

DRUGS (10)
  1. HUMIRA [Suspect]
     Dates: start: 20101101, end: 20101101
  2. METHADONE [Concomitant]
     Indication: PAIN
  3. HUMIRA [Suspect]
     Dates: start: 20101101
  4. METHOTREXATE [Concomitant]
     Indication: RHEUMATOID ARTHRITIS
  5. VITAMIN D [Concomitant]
     Indication: VITAMIN D DEFICIENCY
  6. FOSAMAX [Concomitant]
     Indication: BONE DENSITY DECREASED
  7. XANAX [Concomitant]
     Indication: PRODUCT USED FOR UNKNOWN INDICATION
     Dosage: 3 IN 1 DAY 30 MIN BEFORE MEALS
  8. HUMIRA [Suspect]
     Indication: RHEUMATOID ARTHRITIS
     Dates: start: 20090501, end: 20101001
  9. SYNTHROID [Suspect]
     Indication: HYPOTHYROIDISM
  10. FOLIC ACID [Concomitant]
     Indication: VITAMIN SUPPLEMENTATION

REACTIONS (11)
  - DIPLOPIA [None]
  - ARTHRALGIA [None]
  - CATARACT [None]
  - PAIN OF SKIN [None]
  - LETHARGY [None]
  - WEIGHT INCREASED [None]
  - INFECTION [None]
  - DRUG INEFFECTIVE [None]
  - VISUAL IMPAIRMENT [None]
  - THYROID FUNCTION TEST ABNORMAL [None]
  - HAND DEFORMITY [None]
